FAERS Safety Report 13916860 (Version 1)
Quarter: 2017Q3

REPORT INFORMATION
  Report Type: Spontaneous
  Country: US (occurrence: US)
  Receive Date: 20170829
  Receipt Date: 20170829
  Transmission Date: 20171127
  Serious: Yes (Hospitalization, Other)
  Sender: FDA-Public Use
  Company Number: US-ASTRAZENECA-2017SE85821

PATIENT
  Sex: Female

DRUGS (13)
  1. ASPIRIN. [Concomitant]
     Active Substance: ASPIRIN
     Dosage: 325 MG DELAYED RELEASE, AS REQUIRED
     Route: 048
     Dates: start: 20151103
  2. ARIMIDEX [Suspect]
     Active Substance: ANASTROZOLE
     Indication: INFLAMMATORY CARCINOMA OF THE BREAST
     Route: 048
     Dates: start: 20120803
  3. POTASSIUM CHLORIDE. [Concomitant]
     Active Substance: POTASSIUM CHLORIDE
     Dosage: CRYS CR 20 MEQ
     Route: 048
     Dates: start: 20160712
  4. BYSTOLIC [Concomitant]
     Active Substance: NEBIVOLOL HYDROCHLORIDE
     Route: 048
     Dates: start: 20170712
  5. DULOXETINE HYDROCHLORIDE. [Concomitant]
     Active Substance: DULOXETINE HYDROCHLORIDE
     Dosage: 20MG, DELAYED RELEASE, DAILY
     Route: 048
     Dates: start: 20150903
  6. IBUPROFEN. [Concomitant]
     Active Substance: IBUPROFEN
     Dosage: 200 MICROGRAM; TAKE 2 TABLET AS NEEDED.
     Route: 048
     Dates: start: 20170411
  7. MECLIZINE HCL [Concomitant]
     Active Substance: MECLIZINE HYDROCHLORIDE
     Dosage: 12.5 MICROGRAM, HALF TABLET AS REQUIRED
     Route: 048
     Dates: start: 20120131
  8. BENADRYL [Concomitant]
     Active Substance: DIPHENHYDRAMINE HYDROCHLORIDE
     Dosage: 25.0MG AS REQUIRED
     Route: 048
     Dates: start: 20111118
  9. RETIN-A-MICRO [Concomitant]
     Dosage: 0.04 PERCENT, APPLY SPARINGLY TO AFFECTED AREAS, ONCE DAILY.
     Route: 061
     Dates: start: 20160312
  10. FENTANYL. [Concomitant]
     Active Substance: FENTANYL
     Dosage: 12 MICROGRAM PER HOUR, APPLY 1 PATCH EVERY 72 HOURS
     Route: 061
     Dates: start: 20170712
  11. ZOLPIDEM TARTRATE. [Concomitant]
     Active Substance: ZOLPIDEM TARTRATE
     Dosage: 12.5 MICROGRAM, EXTENDED RELEAEA; DAILY AT BEDTIME, AS REQUIRED
     Route: 048
     Dates: start: 20110802
  12. IBRANCE [Concomitant]
     Active Substance: PALBOCICLIB
     Indication: BREAST CANCER FEMALE
     Route: 048
     Dates: start: 20170713
  13. ALPRAZOLAM. [Concomitant]
     Active Substance: ALPRAZOLAM
     Dosage: 0.5MG, ONE AND HALF TABLET DAILY.
     Route: 048
     Dates: start: 20111118

REACTIONS (12)
  - Pleural effusion [Unknown]
  - Dysphonia [Unknown]
  - Metastases to pleura [Unknown]
  - Cardiac failure [Unknown]
  - Pericardial effusion [Recovered/Resolved]
  - Cardiac tamponade [Unknown]
  - Pericarditis malignant [Unknown]
  - Metastases to lung [Unknown]
  - Malignant neoplasm progression [Unknown]
  - Dyspnoea [Unknown]
  - Pulmonary oedema [Unknown]
  - Metastases to lymph nodes [Unknown]
